FAERS Safety Report 25211837 (Version 1)
Quarter: 2025Q2

REPORT INFORMATION
  Report Type: Spontaneous
  Country: US (occurrence: US)
  Receive Date: 20250418
  Receipt Date: 20250418
  Transmission Date: 20250716
  Serious: Yes (Life-Threatening, Hospitalization, Other)
  Sender: RANBAXY
  Company Number: US-SUN PHARMACEUTICAL INDUSTRIES LTD-2025R1-504139

PATIENT
  Age: 60 Year
  Sex: Male

DRUGS (1)
  1. CITALOPRAM [Suspect]
     Active Substance: CITALOPRAM
     Indication: Product used for unknown indication
     Route: 065

REACTIONS (10)
  - Overdose [Unknown]
  - Suicide attempt [Unknown]
  - Pyrexia [Unknown]
  - Tachycardia [Unknown]
  - Myoclonus [Unknown]
  - Serotonin syndrome [Unknown]
  - Respiratory distress [Unknown]
  - Pain [Unknown]
  - Flatulence [Unknown]
  - Intestinal pseudo-obstruction [Recovered/Resolved]
